FAERS Safety Report 12360610 (Version 5)
Quarter: 2016Q4

REPORT INFORMATION
  Report Type: Spontaneous
  Country: US (occurrence: US)
  Receive Date: 20160512
  Receipt Date: 20161103
  Transmission Date: 20170207
  Serious: Yes (Hospitalization, Other)
  Sender: FDA-Public Use
  Company Number: US-IPSEN BIOPHARMACEUTICALS, INC.-2016-03892

PATIENT
  Age: 54 Year
  Sex: Female
  Weight: 45.36 kg

DRUGS (8)
  1. DYSPORT [Suspect]
     Active Substance: ABOBOTULINUMTOXINA
     Indication: SKIN WRINKLING
  2. COLACE [Concomitant]
     Active Substance: DOCUSATE SODIUM
     Route: 048
  3. DYSPORT [Suspect]
     Active Substance: ABOBOTULINUMTOXINA
     Indication: SKIN WRINKLING
     Dosage: 60 IU
     Route: 030
     Dates: start: 20160405, end: 20160405
  4. DYSPORT [Suspect]
     Active Substance: ABOBOTULINUMTOXINA
     Indication: SKIN WRINKLING
  5. ZOLOFT [Concomitant]
     Active Substance: SERTRALINE HYDROCHLORIDE
     Indication: DEPRESSION
  6. DYSPORT [Suspect]
     Active Substance: ABOBOTULINUMTOXINA
     Indication: PRODUCT USE ISSUE
  7. SEROQUEL [Concomitant]
     Active Substance: QUETIAPINE FUMARATE
  8. ESTRADIOL TRANSDERMAL SYSTEM [Concomitant]
     Active Substance: ESTRADIOL
     Route: 061

REACTIONS (15)
  - Fatigue [Unknown]
  - Neck pain [Unknown]
  - Disturbance in attention [Not Recovered/Not Resolved]
  - Vital functions abnormal [Unknown]
  - Hypoaesthesia oral [Unknown]
  - Neuromuscular toxicity [Unknown]
  - Eyelid ptosis [Recovered/Resolved]
  - Syncope [Recovered/Resolved]
  - Road traffic accident [Unknown]
  - Vertigo [Unknown]
  - Vision blurred [Not Recovered/Not Resolved]
  - Dry eye [Not Recovered/Not Resolved]
  - Head discomfort [Not Recovered/Not Resolved]
  - Memory impairment [Unknown]
  - Dental operation [Unknown]

NARRATIVE: CASE EVENT DATE: 2016
